FAERS Safety Report 12740555 (Version 1)
Quarter: 2016Q3

REPORT INFORMATION
  Report Type: Spontaneous
  Country: US (occurrence: US)
  Receive Date: 20160913
  Receipt Date: 20160913
  Transmission Date: 20161109
  Serious: Yes (Other)
  Sender: FDA-Public Use
  Company Number: US-ELI_LILLY_AND_COMPANY-US201609001312

PATIENT
  Sex: Female

DRUGS (4)
  1. HUMALOG [Suspect]
     Active Substance: INSULIN LISPRO
     Indication: DIABETES MELLITUS
     Dosage: 25 U, BID
     Route: 065
     Dates: start: 2010
  2. HUMALOG [Suspect]
     Active Substance: INSULIN LISPRO
     Dosage: UNK, PRN
     Route: 065
     Dates: start: 2010
  3. HUMALOG [Suspect]
     Active Substance: INSULIN LISPRO
     Dosage: 15 U, EACH MORNING
     Route: 065
     Dates: start: 2010
  4. TOUJEO [Concomitant]
     Active Substance: INSULIN GLARGINE

REACTIONS (17)
  - Nephrolithiasis [Unknown]
  - Visual impairment [Unknown]
  - Pain in extremity [Unknown]
  - Headache [Unknown]
  - Eye haemorrhage [Unknown]
  - Muscular weakness [Unknown]
  - Balance disorder [Unknown]
  - Upper limb fracture [Unknown]
  - Memory impairment [Unknown]
  - Musculoskeletal pain [Unknown]
  - Device dislocation [Unknown]
  - Vitreous floaters [Unknown]
  - Kidney infection [Unknown]
  - Vision blurred [Unknown]
  - Fall [Unknown]
  - Limb discomfort [Unknown]
  - Somnolence [Unknown]
